FAERS Safety Report 11642108 (Version 3)
Quarter: 2015Q4

REPORT INFORMATION
  Report Type: Spontaneous
  Country: IQ (occurrence: IQ)
  Receive Date: 20151019
  Receipt Date: 20151105
  Transmission Date: 20160304
  Serious: Yes (Other)
  Sender: FDA-Public Use
  Company Number: IQ-009507513-1510IRQ008722

PATIENT
  Age: 23 Year
  Sex: Male

DRUGS (6)
  1. CREATININE [Concomitant]
     Active Substance: CREATININE
     Indication: MUSCLE BUILDING THERAPY
     Dosage: 15 MG, UNK
  2. TESTOSTERONE. [Suspect]
     Active Substance: TESTOSTERONE
     Indication: MUSCLE BUILDING THERAPY
     Dosage: UNK, WEEKLY DOSE THAT EXCEEDED 400 MG
     Route: 030
  3. ASCORBIC ACID. [Concomitant]
     Active Substance: ASCORBIC ACID
     Indication: PRODUCT USED FOR UNKNOWN INDICATION
     Dosage: 200 MG DAILY DOSE
  4. PROTEIN (UNSPECIFIED) [Concomitant]
     Indication: MUSCLE BUILDING THERAPY
     Dosage: 78 - 104 G, UNK
  5. NANDROLONE DECANOATE. [Suspect]
     Active Substance: NANDROLONE DECANOATE
     Indication: MUSCLE BUILDING THERAPY
     Dosage: UNK, WEEKLY DOSE THAT EXCEEDED 400 MG
     Route: 030
  6. VITAMIN D [Suspect]
     Active Substance: CHOLECALCIFEROL
     Indication: PRODUCT USED FOR UNKNOWN INDICATION
     Dosage: 400 IU, DAILY DOSE
     Route: 065

REACTIONS (2)
  - Renal tubular necrosis [Recovering/Resolving]
  - Drug abuse [Recovered/Resolved]
